FAERS Safety Report 17916981 (Version 3)
Quarter: 2020Q3

REPORT INFORMATION
  Report Type: Spontaneous
  Country: JP (occurrence: JP)
  Receive Date: 20200619
  Receipt Date: 20200701
  Transmission Date: 20201103
  Serious: Yes (Other)
  Sender: FDA-Public Use
  Company Number: NVSJ2020JP005970

PATIENT
  Age: 53 Year
  Sex: Female

DRUGS (4)
  1. EVEROLIMUS. [Suspect]
     Active Substance: EVEROLIMUS
     Indication: UTERINE CANCER
     Dosage: 8 CYCLE
     Route: 065
  2. NIVOLUMAB [Concomitant]
     Active Substance: NIVOLUMAB
     Indication: UTERINE CANCER
     Dosage: 8 CYCLE
     Route: 065
  3. EVEROLIMUS. [Suspect]
     Active Substance: EVEROLIMUS
     Indication: METASTASIS
  4. NIVOLUMAB [Concomitant]
     Active Substance: NIVOLUMAB
     Indication: METASTASIS

REACTIONS (10)
  - Metastases to peritoneum [Unknown]
  - Hypoglycaemia [Unknown]
  - Drug-induced liver injury [Unknown]
  - Metastases to lymph nodes [Unknown]
  - Jaundice [Unknown]
  - Off label use [Unknown]
  - Abnormal clotting factor [Unknown]
  - Hepatic steatosis [Unknown]
  - Hepatic failure [Unknown]
  - Nonalcoholic fatty liver disease [Unknown]
